FAERS Safety Report 17830203 (Version 1)
Quarter: 2020Q2

REPORT INFORMATION
  Report Type: Spontaneous
  Country: US (occurrence: US)
  Receive Date: 20200527
  Receipt Date: 20200527
  Transmission Date: 20200714
  Serious: Yes (Other)
  Sender: FDA-Public Use
  Company Number: US-PURDUE-USA-2020-0153152

PATIENT
  Sex: Female

DRUGS (1)
  1. HYDROCODONE BITARTRATE AND ACETAMINOPHEN [Suspect]
     Active Substance: ACETAMINOPHEN\HYDROCODONE BITARTRATE
     Indication: PRODUCT USED FOR UNKNOWN INDICATION
     Dosage: UNKNOWN
     Route: 048

REACTIONS (9)
  - Immune system disorder [Unknown]
  - Pain [Unknown]
  - Mobility decreased [Unknown]
  - Rash [Unknown]
  - Bedridden [Unknown]
  - Urticaria [Unknown]
  - Impaired work ability [Unknown]
  - Decubitus ulcer [Unknown]
  - Malaise [Unknown]
